FAERS Safety Report 12608078 (Version 5)
Quarter: 2016Q4

REPORT INFORMATION
  Report Type: Spontaneous
  Country: JP (occurrence: JP)
  Receive Date: 20160729
  Receipt Date: 20161007
  Transmission Date: 20170207
  Serious: Yes (Hospitalization, Other)
  Sender: FDA-Public Use
  Company Number: JP-NAPPMUNDI-GBR-2016-0039354

PATIENT
  Age: 72 Year
  Sex: Female

DRUGS (11)
  1. LOXONIN [Concomitant]
     Active Substance: LOXOPROFEN SODIUM
     Indication: CANCER PAIN
     Dosage: 180 MG, DAILY
     Route: 048
     Dates: start: 201406
  2. LOXONIN [Concomitant]
     Active Substance: LOXOPROFEN SODIUM
     Indication: SKIN ULCER
  3. LYRICA [Concomitant]
     Active Substance: PREGABALIN
     Indication: SKIN ULCER
     Dosage: 150 MG, DAILY
     Route: 048
     Dates: start: 201507
  4. OXYCONTIN [Suspect]
     Active Substance: OXYCODONE HYDROCHLORIDE
     Indication: CANCER PAIN
     Dosage: 30 MG, BID
     Route: 048
     Dates: start: 20160414, end: 20160515
  5. OXYCONTIN [Suspect]
     Active Substance: OXYCODONE HYDROCHLORIDE
     Indication: SKIN ULCER
     Dosage: 20 MG, BID
     Route: 048
     Dates: start: 20160317, end: 20160413
  6. HALAVEN [Suspect]
     Active Substance: ERIBULIN MESYLATE
     Indication: CANCER PAIN
     Dosage: 2 MG, DAILY
     Route: 042
     Dates: start: 20160428, end: 20160721
  7. SPIRONOLACTONE. [Concomitant]
     Active Substance: SPIRONOLACTONE
     Indication: CARDIAC FAILURE
     Dosage: 50 MG, DAILY
     Route: 048
     Dates: start: 201507
  8. PREDONINE [Concomitant]
     Active Substance: PREDNISOLONE\PREDNISOLONE ACETATE\PREDNISOLONE SODIUM SUCCINATE
     Indication: CANCER PAIN
     Dosage: 2.5 MG, DAILY
     Route: 048
     Dates: start: 20150604
  9. FUROSEMIDE. [Concomitant]
     Active Substance: FUROSEMIDE
     Indication: CARDIAC FAILURE
     Dosage: 20 MG, DAILY
     Route: 048
     Dates: start: 201507
  10. GOSHAJINKIGAN [Concomitant]
     Active Substance: HERBALS
     Indication: SKIN ULCER
     Dosage: 7.5 G, DAILY
     Route: 048
     Dates: start: 201507, end: 201604
  11. OXYCONTIN [Suspect]
     Active Substance: OXYCODONE HYDROCHLORIDE
     Dosage: 10 MG, BID
     Route: 048
     Dates: start: 20160218, end: 20160316

REACTIONS (3)
  - Sepsis [Recovered/Resolved]
  - Fall [Recovered/Resolved]
  - Delirium [Recovering/Resolving]

NARRATIVE: CASE EVENT DATE: 201604
